FAERS Safety Report 14152583 (Version 3)
Quarter: 2018Q1

REPORT INFORMATION
  Report Type: Report from Study
  Country: JP (occurrence: JP)
  Receive Date: 20171102
  Receipt Date: 20180316
  Transmission Date: 20180508
  Serious: Yes (Other)
  Sender: FDA-Public Use
  Company Number: JP-AMGEN-JPNCT2016153078

PATIENT
  Age: 57 Year
  Sex: Female
  Weight: 47 kg

DRUGS (20)
  1. ENDOXAN [Concomitant]
     Active Substance: CYCLOPHOSPHAMIDE
     Indication: IMMUNE THROMBOCYTOPENIC PURPURA
     Dosage: 500 MG, UNK
     Route: 042
     Dates: start: 20140911
  2. PREDONINE [Concomitant]
     Active Substance: PREDNISOLONE
     Indication: IMMUNE THROMBOCYTOPENIC PURPURA
     Dosage: 25 MG, UNK
     Route: 048
     Dates: start: 20141104, end: 20141120
  3. ROMIPLOSTIM [Suspect]
     Active Substance: ROMIPLOSTIM
     Dosage: 2 MUG/KG, QWK
     Route: 058
     Dates: start: 20150403, end: 20150417
  4. PREDONINE [Concomitant]
     Active Substance: PREDNISOLONE
     Dosage: 20 MG, UNK
     Route: 048
     Dates: start: 20141121, end: 20141218
  5. PREDONINE [Concomitant]
     Active Substance: PREDNISOLONE
     Dosage: 17.5 MG, UNK
     Route: 048
     Dates: start: 20141219, end: 20150104
  6. PREDONINE [Concomitant]
     Active Substance: PREDNISOLONE
     Dosage: 15 MG, UNK
     Route: 048
     Dates: start: 20150105, end: 20150129
  7. PREDNISOLONE. [Concomitant]
     Active Substance: PREDNISOLONE
     Indication: IMMUNE THROMBOCYTOPENIC PURPURA
     Dosage: 4 MG, UNK
     Route: 048
     Dates: start: 20150130, end: 20150409
  8. CONIEL [Concomitant]
     Active Substance: BENIDIPINE HYDROCHLORIDE
     Indication: PRINZMETAL ANGINA
     Dosage: UNK
     Route: 048
  9. PETROLATUM SALICYLATE [Concomitant]
     Indication: HYPERKERATOSIS
     Dosage: UNK
     Route: 061
  10. SAMTIREL [Concomitant]
     Active Substance: ATOVAQUONE
     Indication: PROPHYLAXIS
     Dosage: UNK
     Route: 048
  11. ROMIPLOSTIM [Suspect]
     Active Substance: ROMIPLOSTIM
     Indication: IMMUNE THROMBOCYTOPENIC PURPURA
     Dosage: 2 MUG/KG, QWK
     Route: 058
     Dates: start: 20141107, end: 20141114
  12. ROMIPLOSTIM [Suspect]
     Active Substance: ROMIPLOSTIM
     Dosage: 2 MUG/KG, QMO
     Route: 058
     Dates: start: 20141205, end: 20150105
  13. ROMIPLOSTIM [Suspect]
     Active Substance: ROMIPLOSTIM
     Dosage: 2 MUG/KG, UNK
     Route: 058
     Dates: start: 20150501
  14. MAGLAX [Concomitant]
     Active Substance: MAGNESIUM OXIDE
     Indication: CONSTIPATION
     Dosage: UNK
     Route: 048
  15. NEXIUM [Concomitant]
     Active Substance: ESOMEPRAZOLE MAGNESIUM
     Indication: PROPHYLAXIS
     Dosage: UNK
     Route: 048
  16. ROMIPLOSTIM [Suspect]
     Active Substance: ROMIPLOSTIM
     Dosage: 2 MUG/KG, Q4WK
     Route: 058
     Dates: start: 20150130, end: 20150327
  17. PREDONINE [Concomitant]
     Active Substance: PREDNISOLONE
     Dosage: 10 MG, UNK
     Route: 048
     Dates: start: 20150130
  18. PREDNISOLONE. [Concomitant]
     Active Substance: PREDNISOLONE
     Dosage: 3 MG, UNK
     Route: 048
     Dates: start: 20150410
  19. RENIVACE [Concomitant]
     Active Substance: ENALAPRIL
     Indication: HYPERTENSION
     Dosage: UNK
     Route: 048
  20. BONALON [Concomitant]
     Active Substance: ALENDRONATE SODIUM
     Indication: PROPHYLAXIS
     Dosage: UNK
     Route: 048

REACTIONS (1)
  - Subcutaneous abscess [Recovered/Resolved]

NARRATIVE: CASE EVENT DATE: 20150114
